FAERS Safety Report 25670636 (Version 1)
Quarter: 2025Q3

REPORT INFORMATION
  Report Type: Report from Study
  Country: BR (occurrence: BR)
  Receive Date: 20250812
  Receipt Date: 20250812
  Transmission Date: 20251021
  Serious: Yes (Other)
  Sender: BIOGEN
  Company Number: BR-BIOGEN-2025BI01319984

PATIENT
  Sex: Female

DRUGS (12)
  1. TYSABRI [Suspect]
     Active Substance: NATALIZUMAB
     Indication: Multiple sclerosis
     Route: 050
  2. Ossotrat (Calcium Carbonate + Vitamin D) [Concomitant]
     Indication: Product used for unknown indication
     Route: 050
  3. PROPRANOLOL [Concomitant]
     Active Substance: PROPRANOLOL HYDROCHLORIDE
     Indication: Product used for unknown indication
     Route: 050
  4. COMBIGAN [Concomitant]
     Active Substance: BRIMONIDINE TARTRATE\TIMOLOL MALEATE
     Indication: Product used for unknown indication
     Route: 050
  5. Duotravatan (travoprost and timolol) [Concomitant]
     Indication: Product used for unknown indication
     Route: 050
  6. BACLOFEN [Concomitant]
     Active Substance: BACLOFEN
     Indication: Product used for unknown indication
     Route: 050
  7. Neural (mecobalamin) [Concomitant]
     Indication: Product used for unknown indication
     Route: 050
  8. Divalcon Depakote (divalproex sodium) [Concomitant]
     Indication: Product used for unknown indication
     Route: 050
  9. TRILEPTAL [Concomitant]
     Active Substance: OXCARBAZEPINE
     Indication: Product used for unknown indication
     Route: 050
  10. Velija (duloxetine hydrochloride) [Concomitant]
     Indication: Product used for unknown indication
     Route: 050
  11. Menelat (mirtazapine) [Concomitant]
     Indication: Product used for unknown indication
     Route: 050
  12. REXULTI [Concomitant]
     Active Substance: BREXPIPRAZOLE
     Indication: Product used for unknown indication
     Route: 050

REACTIONS (1)
  - Epilepsy [Unknown]

NARRATIVE: CASE EVENT DATE: 20170101
